FAERS Safety Report 6220983-7 (Version None)
Quarter: 2009Q2

REPORT INFORMATION
  Report Type: 
  Country: None (occurrence: None)
  Receive Date: 20090605
  Receipt Date: 20090526
  Transmission Date: 20091009
  Serious: Yes (Hospitalization)
  Sender: FDA-Public Use
  Company Number: FR-WYE-H09577109

PATIENT
  Age: 80 Year
  Sex: Male

DRUGS (8)
  1. CORDARONE [Suspect]
     Dosage: 200 MG 1X PER 1 DAY ORAL ; 400 MG 1X PER 1 DAY ORAL
     Route: 048
     Dates: start: 20090420, end: 20090501
  2. CORDARONE [Suspect]
     Dosage: 200 MG 1X PER 1 DAY ORAL ; 400 MG 1X PER 1 DAY ORAL
     Route: 048
     Dates: start: 20090501, end: 20090511
  3. PLAVIX [Concomitant]
  4. ZOCOR [Concomitant]
  5. FUROSEMIDE [Concomitant]
  6. TAMSULOSIN HCL [Concomitant]
  7. IRBESARTAN [Concomitant]
  8. SERETIDE (SALMETEROL/FLUTICASONE) [Concomitant]

REACTIONS (6)
  - ACUTE GENERALISED EXANTHEMATOUS PUSTULOSIS [None]
  - ASPARTATE AMINOTRANSFERASE INCREASED [None]
  - GENERAL PHYSICAL HEALTH DETERIORATION [None]
  - HYPOTENSION [None]
  - PYREXIA [None]
  - RENAL FAILURE [None]
